FAERS Safety Report 9344551 (Version 1)
Quarter: 2013Q2

REPORT INFORMATION
  Report Type: Spontaneous
  Country: US (occurrence: None)
  Receive Date: 20130611
  Receipt Date: 20130611
  Transmission Date: 20140414
  Serious: Yes (Other)
  Sender: FDA-Public Use
  Company Number: None

PATIENT
  Age: 29 Year
  Sex: Male

DRUGS (1)
  1. DEPOMEDROL [Suspect]
     Indication: TENDONITIS
     Route: 030
     Dates: start: 20130220

REACTIONS (1)
  - Injection site abscess [None]
